FAERS Safety Report 19912309 (Version 1)
Quarter: 2021Q4

REPORT INFORMATION
  Report Type: Spontaneous
  Country: US (occurrence: US)
  Receive Date: 20211003
  Receipt Date: 20211003
  Transmission Date: 20220304
  Serious: Yes (Other)
  Sender: FDA-Public Use
  Company Number: None

PATIENT
  Age: 60 Year
  Sex: Female
  Weight: 74.25 kg

DRUGS (3)
  1. COPPERTONE SPORT SPF 50 (AVOBENZONE\HOMOSALATE\OCTISALATE\OCTOCRYLENE\ [Suspect]
     Active Substance: AVOBENZONE\HOMOSALATE\OCTISALATE\OCTOCRYLENE\OXYBENZONE
     Indication: Prophylaxis against solar radiation
     Dosage: ?          OTHER STRENGTH:1 SPRAY;QUANTITY:1 SPRAY(S);
     Route: 061
     Dates: start: 20210923, end: 20210925
  2. ALBUTEROL [Concomitant]
     Active Substance: ALBUTEROL
  3. IBUPROFEN [Concomitant]
     Active Substance: IBUPROFEN

REACTIONS (2)
  - Urticaria [None]
  - Blister [None]

NARRATIVE: CASE EVENT DATE: 20210925
